FAERS Safety Report 7527177-3 (Version None)
Quarter: 2011Q2

REPORT INFORMATION
  Report Type: 
  Country: None (occurrence: None)
  Receive Date: 20110607
  Receipt Date: 20110526
  Transmission Date: 20111010
  Serious: No
  Sender: FDA-Public Use
  Company Number: US-BIOGENIDEC-2010BI043260

PATIENT
  Sex: Female

DRUGS (1)
  1. TYSABRI [Suspect]
     Indication: MULTIPLE SCLEROSIS
     Route: 042
     Dates: start: 20061208

REACTIONS (5)
  - DRUG EFFECT DECREASED [None]
  - INFUSION RELATED REACTION [None]
  - ASTHENIA [None]
  - POOR VENOUS ACCESS [None]
  - HYPERSENSITIVITY [None]
